FAERS Safety Report 17792651 (Version 3)
Quarter: 2020Q2

REPORT INFORMATION
  Report Type: Spontaneous
  Country: US (occurrence: US)
  Receive Date: 20200515
  Receipt Date: 20200628
  Transmission Date: 20200714
  Serious: No
  Sender: FDA-Public Use
  Company Number: US-GALDERMA-US2020021281

PATIENT
  Age: 19 Year
  Sex: Male

DRUGS (12)
  1. PROACTIV GREEN TEA MOISTURIZER [Concomitant]
     Active Substance: COSMETICS
     Indication: SEBORRHOEA
     Route: 061
     Dates: start: 202003, end: 20200421
  2. PROACTIV DEEP CLEANSING WASH [Concomitant]
     Active Substance: SALICYLIC ACID
     Indication: SEBORRHOEA
     Route: 061
     Dates: start: 202003, end: 20200421
  3. PROACTIV MD ADAPALENE ACNE TREATMENT [Suspect]
     Active Substance: ADAPALENE
     Indication: ACNE
  4. PROACTIV MD DAILY OIL CONTROL SPF 30 [Suspect]
     Active Substance: AVOBENZONE\OCTISALATE\OCTOCRYLENE
     Indication: ACNE
  5. PROACTIV MD ADAPALENE ACNE TREATMENT [Suspect]
     Active Substance: ADAPALENE
     Indication: SEBORRHOEA
     Dosage: 0.1%
     Route: 061
     Dates: start: 202003, end: 20200421
  6. PROACTIV GREEN TEA MOISTURIZER [Concomitant]
     Active Substance: COSMETICS
     Indication: ACNE
  7. PROACTIV MD DEEP CLEANSING FACE WASH [Concomitant]
     Active Substance: COSMETICS
     Indication: ACNE
  8. PROACTIV DEEP CLEANSING WASH [Concomitant]
     Active Substance: SALICYLIC ACID
     Indication: ACNE
  9. PROACTIV MD DEEP CLEANSING FACE WASH [Concomitant]
     Active Substance: COSMETICS
     Indication: SEBORRHOEA
     Route: 061
     Dates: start: 202003, end: 20200421
  10. PROACTIV REDNESS RELIEF SERUM [Concomitant]
     Indication: SEBORRHOEA
     Route: 061
     Dates: start: 202003, end: 20200421
  11. PROACTIV REDNESS RELIEF SERUM [Concomitant]
     Indication: ACNE
  12. PROACTIV MD DAILY OIL CONTROL SPF 30 [Suspect]
     Active Substance: AVOBENZONE\OCTISALATE\OCTOCRYLENE
     Indication: SEBORRHOEA
     Route: 061
     Dates: start: 202003, end: 20200421

REACTIONS (5)
  - Skin burning sensation [Recovering/Resolving]
  - Skin exfoliation [Recovering/Resolving]
  - Dry skin [Recovering/Resolving]
  - Rash [Recovering/Resolving]
  - Hypersensitivity [Recovering/Resolving]

NARRATIVE: CASE EVENT DATE: 202004
